FAERS Safety Report 8629199 (Version 5)
Quarter: 2013Q1

REPORT INFORMATION
  Report Type: Spontaneous
  Country: US (occurrence: US)
  Receive Date: 20120621
  Receipt Date: 20130124
  Transmission Date: 20140127
  Serious: No
  Sender: FDA-Public Use
  Company Number: US-ASTRAZENECA-2012SE38041

PATIENT
  Age: 69 Year
  Sex: Male
  Weight: 88.5 kg

DRUGS (17)
  1. SYMBICORT [Suspect]
     Indication: EXPOSURE TO MOULD
     Dosage: 160/4.5 MCG TWO PUFFS TWO TIMES A DAY
     Route: 055
     Dates: start: 2008
  2. SYMBICORT [Suspect]
     Indication: BRONCHITIS
     Dosage: 160/4.5 MCG TWO PUFFS TWO TIMES A DAY
     Route: 055
     Dates: start: 2008
  3. SYMBICORT [Suspect]
     Indication: CHRONIC OBSTRUCTIVE PULMONARY DISEASE
     Dosage: 160/4.5 MCG TWO PUFFS TWO TIMES A DAY
     Route: 055
     Dates: start: 2008
  4. SYMBICORT [Suspect]
     Indication: EXPOSURE TO MOULD
     Dosage: 160/4.5 MCG TWO PUFFS IN THE MORNING
     Route: 055
  5. SYMBICORT [Suspect]
     Indication: BRONCHITIS
     Dosage: 160/4.5 MCG TWO PUFFS IN THE MORNING
     Route: 055
  6. SYMBICORT [Suspect]
     Indication: CHRONIC OBSTRUCTIVE PULMONARY DISEASE
     Dosage: 160/4.5 MCG TWO PUFFS IN THE MORNING
     Route: 055
  7. SYMBICORT [Suspect]
     Indication: EXPOSURE TO MOULD
     Dosage: 160/4.5 MCG TWO INHALATION, ONCE DAILY
     Route: 055
     Dates: start: 2010
  8. SYMBICORT [Suspect]
     Indication: BRONCHITIS
     Dosage: 160/4.5 MCG TWO INHALATION, ONCE DAILY
     Route: 055
     Dates: start: 2010
  9. SYMBICORT [Suspect]
     Indication: CHRONIC OBSTRUCTIVE PULMONARY DISEASE
     Dosage: 160/4.5 MCG TWO INHALATION, ONCE DAILY
     Route: 055
     Dates: start: 2010
  10. LISINOPRIL [Concomitant]
     Indication: BLOOD PRESSURE ABNORMAL
  11. LISINOPRIL [Concomitant]
     Indication: HYPERTENSION
  12. PROVASTATIN [Concomitant]
     Indication: BLOOD CHOLESTEROL ABNORMAL
  13. THYROXIN [Concomitant]
     Indication: THYROID DISORDER
  14. THYROXIN [Concomitant]
     Indication: HYPOTHYROIDISM
  15. BABY ASPIRIN [Concomitant]
     Indication: ANTICOAGULANT THERAPY
  16. TAMOSULOSIN [Concomitant]
     Indication: PROSTATOMEGALY
  17. ATENOLOL [Concomitant]
     Indication: HYPERTENSION
     Route: 048

REACTIONS (6)
  - Dyspnoea [Not Recovered/Not Resolved]
  - Prostatomegaly [Unknown]
  - Body height decreased [Unknown]
  - Off label use [Unknown]
  - Drug effect decreased [Unknown]
  - Intentional drug misuse [Unknown]
